FAERS Safety Report 24005068 (Version 1)
Quarter: 2024Q2

REPORT INFORMATION
  Report Type: Spontaneous
  Country: US (occurrence: None)
  Receive Date: 20240621
  Receipt Date: 20240621
  Transmission Date: 20240716
  Serious: Yes (Disabling, Other)
  Sender: FDA-Public Use
  Company Number: None

PATIENT
  Age: 71 Year
  Sex: Male
  Weight: 72 kg

DRUGS (13)
  1. REPATHA [Suspect]
     Active Substance: EVOLOCUMAB
     Dosage: OTHER FREQUENCY : EVERY 2 WEEKS;?
     Route: 058
     Dates: start: 20180910, end: 20240403
  2. Dexcom CGM Insulin Pump [Concomitant]
  3. Ozempic HCTZ [Concomitant]
  4. LISINOPRIL [Concomitant]
  5. PROPANALOL [Concomitant]
  6. PRIMIDONE [Concomitant]
     Active Substance: PRIMIDONE
  7. SILDEPHINIL [Concomitant]
  8. MONTEKLAST [Concomitant]
  9. OCUVITE [Concomitant]
     Active Substance: VITAMINS
  10. VITAMIN D3 [Concomitant]
     Active Substance: CHOLECALCIFEROL
  11. VITAMIN B [Concomitant]
     Active Substance: VITAMIN B
  12. VITAMIN B12 [Concomitant]
     Active Substance: CYANOCOBALAMIN
  13. POTASSIUM GLYCERATE [Concomitant]

REACTIONS (10)
  - Drug intolerance [None]
  - Myalgia [None]
  - Tendon rupture [None]
  - Tendonitis [None]
  - Constipation [None]
  - Pain in extremity [None]
  - Depression [None]
  - Mental fatigue [None]
  - Malaise [None]
  - Blood glucose increased [None]

NARRATIVE: CASE EVENT DATE: 20240408
